FAERS Safety Report 15307488 (Version 2)
Quarter: 2018Q4

REPORT INFORMATION
  Report Type: Report from Study
  Country: CA (occurrence: CA)
  Receive Date: 20180822
  Receipt Date: 20181210
  Transmission Date: 20190204
  Serious: Yes (Other)
  Sender: FDA-Public Use
  Company Number: CA-JNJFOC-20180820607

PATIENT
  Sex: Male
  Weight: 41.73 kg

DRUGS (4)
  1. REMICADE [Suspect]
     Active Substance: INFLIXIMAB
     Indication: PSORIASIS
     Dosage: STRENGTH = 100 MG
     Route: 042
     Dates: start: 20081110
  2. ASA [Concomitant]
     Active Substance: ASPIRIN
     Route: 048
  3. METHOTREXATE. [Concomitant]
     Active Substance: METHOTREXATE
     Indication: PSORIASIS
     Route: 058
  4. CELECOXIB. [Concomitant]
     Active Substance: CELECOXIB
     Route: 048

REACTIONS (1)
  - Skin cancer [Recovered/Resolved]
